FAERS Safety Report 8053359-0 (Version None)
Quarter: 2012Q1

REPORT INFORMATION
  Report Type: 
  Country: None (occurrence: None)
  Receive Date: 20120118
  Receipt Date: 20120110
  Transmission Date: 20120608
  Serious: Yes (Hospitalization)
  Sender: FDA-Public Use
  Company Number: US-JNJFOC-20110810479

PATIENT
  Age: 23 Year
  Sex: Male
  Weight: 103 kg

DRUGS (7)
  1. DIPHENHYDRAMINE HCL [Suspect]
     Indication: BACK PAIN
     Dates: start: 20110814
  2. PARACETAMOL/DIPHENHYDRAMINE [Suspect]
     Indication: BACK PAIN
     Dates: start: 20110814
  3. ALCOHOL [Suspect]
     Indication: PRODUCT USED FOR UNKNOWN INDICATION
     Dates: start: 20110814
  4. ACETAMINOPHEN [Suspect]
     Indication: BACK PAIN
     Route: 048
     Dates: start: 20110814
  5. ACETAMINOPHEN [Suspect]
     Indication: HEADACHE
     Route: 048
     Dates: start: 20110814
  6. PARACETAMOL/DIPHENHYDRAMINE [Suspect]
     Indication: HEADACHE
     Dates: start: 20110814
  7. DIPHENHYDRAMINE HCL [Suspect]
     Indication: HEADACHE
     Dates: start: 20110814

REACTIONS (2)
  - OVERDOSE [None]
  - VOMITING [None]
